FAERS Safety Report 5856553-X (Version None)
Quarter: 2008Q3

REPORT INFORMATION
  Report Type: 
  Country: None (occurrence: None)
  Receive Date: 20080822
  Receipt Date: 20080822
  Transmission Date: 20090109
  Serious: Yes (Life-Threatening, Hospitalization)
  Sender: FDA-Public Use
  Company Number: None

PATIENT
  Sex: Female
  Weight: 102.0593 kg

DRUGS (1)
  1. LIPITOR [Suspect]
     Indication: BLOOD CHOLESTEROL
     Dosage: 1 A DAY
     Dates: start: 20060501, end: 20070101

REACTIONS (4)
  - FALL [None]
  - HEART RATE INCREASED [None]
  - MALAISE [None]
  - MYALGIA [None]
